FAERS Safety Report 10254409 (Version 1)
Quarter: 2014Q2

REPORT INFORMATION
  Report Type: Report from Study
  Country: CO (occurrence: CO)
  Receive Date: 20140624
  Receipt Date: 20140624
  Transmission Date: 20141212
  Serious: Yes (Death)
  Sender: FDA-Public Use
  Company Number: CO-ASTRAZENECA-2014SE45093

PATIENT
  Age: 58 Year
  Sex: Female

DRUGS (2)
  1. BRILINTA [Suspect]
     Indication: INFARCTION
     Route: 048
     Dates: start: 20140105, end: 20140503
  2. ASA [Concomitant]

REACTIONS (2)
  - Renal failure [Fatal]
  - Pulmonary oedema [Fatal]
